FAERS Safety Report 25643346 (Version 1)
Quarter: 2025Q3

REPORT INFORMATION
  Report Type: Report from Study
  Country: JP (occurrence: JP)
  Receive Date: 20250805
  Receipt Date: 20250805
  Transmission Date: 20251021
  Serious: Yes (Hospitalization, Other)
  Sender: ALEXION PHARMACEUTICALS
  Company Number: JP-ALXN-A202106368

PATIENT
  Age: 88 Year
  Sex: Male
  Weight: 46.2 kg

DRUGS (23)
  1. SOLIRIS [Suspect]
     Active Substance: ECULIZUMAB
     Indication: Myasthenia gravis
     Dosage: 900 MILLIGRAM, QW
     Dates: start: 20200925, end: 20201016
  2. SOLIRIS [Suspect]
     Active Substance: ECULIZUMAB
     Dosage: 1200 MILLIGRAM, Q2W
     Dates: start: 20201023
  3. MESTINON [Concomitant]
     Active Substance: PYRIDOSTIGMINE BROMIDE
     Indication: Myasthenia gravis
     Dosage: 120 MILLIGRAM, BID
  4. TACROLIMUS [Concomitant]
     Active Substance: TACROLIMUS
     Indication: Myasthenia gravis
     Dosage: 1 MILLIGRAM, QD
     Dates: end: 20200820
  5. TACROLIMUS [Concomitant]
     Active Substance: TACROLIMUS
     Dosage: 2 MILLIGRAM, QD
     Dates: start: 20200821, end: 20210325
  6. TACROLIMUS [Concomitant]
     Active Substance: TACROLIMUS
     Dosage: 1 MILLIGRAM, QD
     Dates: start: 20210326
  7. PREDNISOLONE [Concomitant]
     Active Substance: PREDNISOLONE
     Indication: Myasthenia gravis
     Dosage: 15 MILLIGRAM, QD
     Dates: start: 20200708, end: 20200820
  8. PREDNISOLONE [Concomitant]
     Active Substance: PREDNISOLONE
     Dosage: 13 MILLIGRAM, QD
     Dates: start: 20200821, end: 20210311
  9. PREDNISOLONE [Concomitant]
     Active Substance: PREDNISOLONE
     Dosage: 12 MILLIGRAM, QD
     Dates: start: 20210312, end: 20210325
  10. PREDNISOLONE [Concomitant]
     Active Substance: PREDNISOLONE
     Dosage: 11 MILLIGRAM, QD
     Dates: start: 20210326
  11. PREDNISOLONE [Concomitant]
     Active Substance: PREDNISOLONE
     Indication: Myasthenia gravis
     Dosage: 10 MILLIGRAM, QD
     Dates: end: 20200207
  12. PREDNISOLONE [Concomitant]
     Active Substance: PREDNISOLONE
     Dosage: 15 MILLIGRAM, QD
     Dates: start: 20200208, end: 20200707
  13. ENALAPRIL MALEATE [Concomitant]
     Active Substance: ENALAPRIL MALEATE
     Dosage: 2.5 MILLIGRAM, QD
     Dates: start: 20200606
  14. CARVEDILOL [Concomitant]
     Active Substance: CARVEDILOL
     Dosage: 2.5 MILLIGRAM, QD
     Dates: start: 20200530, end: 20200704
  15. CARVEDILOL [Concomitant]
     Active Substance: CARVEDILOL
     Dosage: 5 MILLIGRAM, QD
     Dates: start: 20200705, end: 20210325
  16. CARVEDILOL [Concomitant]
     Active Substance: CARVEDILOL
     Dosage: 2.5 MILLIGRAM, BID
     Dates: start: 20210326
  17. CILOSTAZOL [Concomitant]
     Active Substance: CILOSTAZOL
     Dosage: 200 MILLIGRAM, BID
     Dates: start: 20200703, end: 20210615
  18. LINAGLIPTIN [Concomitant]
     Active Substance: LINAGLIPTIN
     Dosage: 5 MILLIGRAM, QD
     Dates: start: 20201003
  19. Glufast od [Concomitant]
     Dosage: 15 MILLIGRAM, TID
     Dates: start: 20201023, end: 20201105
  20. Glufast od [Concomitant]
     Dosage: 20 MILLIGRAM, TID
     Dates: start: 20201106, end: 20210726
  21. Glufast od [Concomitant]
     Dosage: 5 MILLIGRAM, QD
     Dates: start: 20210728
  22. AUGMENTIN [Concomitant]
     Active Substance: AMOXICILLIN\CLAVULANATE POTASSIUM
     Indication: Prophylaxis
     Dosage: 1 DOSAGE FORM, TID
     Dates: start: 20200925, end: 20200925
  23. CIPROFLOXACIN [Concomitant]
     Active Substance: CIPROFLOXACIN
     Indication: Prophylaxis
     Dosage: 400 MG, BID
     Dates: start: 20200925, end: 20200925

REACTIONS (6)
  - Myelodysplastic syndrome [Unknown]
  - Abdominal abscess [Recovered/Resolved]
  - Staphylococcal abscess [Recovered/Resolved]
  - Atrial fibrillation [Unknown]
  - Back pain [Unknown]
  - Fall [Unknown]

NARRATIVE: CASE EVENT DATE: 20210203
